FAERS Safety Report 8575149 (Version 3)
Quarter: 2012Q4

REPORT INFORMATION
  Report Type: 
  Country: JP (occurrence: JP)
  Receive Date: 20120523
  Receipt Date: 20121224
  Transmission Date: 20130627
  Serious: Yes (Life-Threatening, Other)
  Sender: FDA-Public Use
  Company Number: PHHY2012JP021038

PATIENT
  Age: 66 Year
  Sex: Male
  Weight: 63 kg

DRUGS (3)
  1. IMATINIB [Suspect]
     Indication: GASTROINTESTINAL STROMAL TUMOUR
     Dosage: 400 mg daily
     Route: 048
     Dates: start: 20120305, end: 20120307
  2. IMATINIB [Suspect]
     Dosage: 100 mg, daily
     Route: 048
     Dates: start: 20120328
  3. IMATINIB [Suspect]
     Dosage: 200 mg, daily
     Route: 048

REACTIONS (12)
  - Shock [Unknown]
  - Heart rate decreased [Unknown]
  - Blood pressure immeasurable [Unknown]
  - Arrhythmia [Recovered/Resolved]
  - Nausea [Unknown]
  - Chest discomfort [Unknown]
  - Pulseless electrical activity [Unknown]
  - Gastrointestinal stromal tumour [Unknown]
  - Malignant neoplasm progression [Unknown]
  - Electrocardiogram T wave inversion [Recovering/Resolving]
  - Liver disorder [Unknown]
  - Blood bilirubin increased [Unknown]
